FAERS Safety Report 5486117-1 (Version None)
Quarter: 2007Q4

REPORT INFORMATION
  Report Type: 
  Country: None (occurrence: None)
  Receive Date: 20071015
  Receipt Date: 20071003
  Transmission Date: 20080405
  Serious: Yes (Other)
  Sender: FDA-Public Use
  Company Number: US-PFIZER INC-2007069197

PATIENT
  Sex: Female
  Weight: 54.4 kg

DRUGS (9)
  1. CHANTIX [Suspect]
     Indication: SMOKING CESSATION THERAPY
  2. DUONEB [Suspect]
     Indication: DYSPNOEA
     Dates: start: 20070801, end: 20070801
  3. DUONEB [Suspect]
     Indication: LOWER RESPIRATORY TRACT INFECTION
  4. PERCOCET [Concomitant]
  5. SOMA [Concomitant]
  6. RESTORIL [Concomitant]
  7. CODICLEAR [Concomitant]
  8. OTHER RESPIRATORY SYSTEM PRODUCTS [Concomitant]
  9. AZITHROMYCIN [Concomitant]

REACTIONS (12)
  - ABDOMINAL PAIN [None]
  - ABNORMAL DREAMS [None]
  - CONSTIPATION [None]
  - DYSPEPSIA [None]
  - FLATULENCE [None]
  - HEADACHE [None]
  - HYPERSENSITIVITY [None]
  - INSOMNIA [None]
  - MOLE EXCISION [None]
  - NAUSEA [None]
  - STRESS [None]
  - TREMOR [None]
